FAERS Safety Report 4427981-4 (Version None)
Quarter: 2004Q3

REPORT INFORMATION
  Report Type: 
  Country: None (occurrence: None)
  Receive Date: 20040726
  Receipt Date: 20040512
  Transmission Date: 20050211
  Serious: No
  Sender: FDA-Public Use
  Company Number: USA030640416

PATIENT
  Age: 66 Year
  Sex: Female
  Weight: 52 kg

DRUGS (6)
  1. FORTEO [Suspect]
     Indication: OSTEOPOROSIS
     Dosage: 20 UG DAY
     Dates: start: 20030625
  2. PRILOSEC [Concomitant]
  3. ALLEGRA-D [Concomitant]
  4. FLONASE [Concomitant]
  5. LIPITOR [Concomitant]
  6. TYLENOL [Concomitant]

REACTIONS (9)
  - ARTHRALGIA [None]
  - BACK PAIN [None]
  - FATIGUE [None]
  - FLATULENCE [None]
  - INJECTION SITE PAIN [None]
  - MUSCLE CRAMP [None]
  - ORAL DISCOMFORT [None]
  - PAIN EXACERBATED [None]
  - SOMNOLENCE [None]
